FAERS Safety Report 9643466 (Version 6)
Quarter: 2016Q4

REPORT INFORMATION
  Report Type: Report from Study
  Country: FR (occurrence: FR)
  Receive Date: 20131024
  Receipt Date: 20161128
  Transmission Date: 20170207
  Serious: Yes (Hospitalization)
  Sender: FDA-Public Use
  Company Number: FR-JNJFOC-20131010931

PATIENT
  Age: 28 Year
  Sex: Female
  Weight: 56 kg

DRUGS (8)
  1. REMICADE [Suspect]
     Active Substance: INFLIXIMAB
     Indication: COLITIS ULCERATIVE
     Route: 042
     Dates: start: 20081126, end: 20081126
  2. REMICADE [Suspect]
     Active Substance: INFLIXIMAB
     Indication: COLITIS ULCERATIVE
     Route: 042
     Dates: start: 20081107
  3. TOPALGIC [Concomitant]
     Active Substance: TRAMADOL
     Indication: PAIN
     Route: 048
  4. SPASFON [Concomitant]
     Active Substance: PHLOROGLUCINOL
     Indication: PAIN
     Dosage: UNIT 6 CP
     Route: 048
     Dates: start: 20081114
  5. CIPROFLOXACINE [Concomitant]
     Active Substance: CIPROFLOXACIN
     Indication: INFECTION
     Route: 048
     Dates: start: 20111121, end: 20111124
  6. DAFALGAN [Concomitant]
     Active Substance: ACETAMINOPHEN
     Indication: PYREXIA
     Route: 048
     Dates: start: 20081121
  7. AUGMENTIN [Concomitant]
     Active Substance: AMOXICILLIN\CLAVULANATE POTASSIUM
     Indication: INFECTION
     Route: 048
     Dates: start: 20081121, end: 20081125
  8. VOGALENE [Concomitant]
     Active Substance: METOPIMAZINE
     Indication: NAUSEA
     Route: 048
     Dates: start: 20081114, end: 20081125

REACTIONS (2)
  - Weight decreased [Recovered/Resolved]
  - Colitis ulcerative [Recovering/Resolving]

NARRATIVE: CASE EVENT DATE: 20081125
